FAERS Safety Report 23399527 (Version 1)
Quarter: 2024Q1

REPORT INFORMATION
  Report Type: Spontaneous
  Country: AU (occurrence: AU)
  Receive Date: 20240113
  Receipt Date: 20240113
  Transmission Date: 20240409
  Serious: Yes (Other)
  Sender: FDA-Public Use
  Company Number: AU-AMGEN-AUSSP2024006719

PATIENT
  Sex: Male

DRUGS (2)
  1. ADALIMUMAB [Suspect]
     Active Substance: ADALIMUMAB\ISOPROPYL ALCOHOL
     Indication: Crohn^s disease
     Dosage: 40 MILLIGRAM, QWK
     Route: 058
  2. INFLIXIMAB [Concomitant]
     Active Substance: INFLIXIMAB
     Indication: Product used for unknown indication
     Dosage: UNK
     Route: 065

REACTIONS (9)
  - Rectal ulcer [Unknown]
  - Large intestinal stenosis [Unknown]
  - Rectal stenosis [Unknown]
  - Colitis [Unknown]
  - Therapeutic product effect incomplete [Unknown]
  - Anal skin tags [Unknown]
  - Disease risk factor [Unknown]
  - Inflammation [Unknown]
  - Proctalgia [Unknown]
